FAERS Safety Report 6357571-8 (Version None)
Quarter: 2009Q3

REPORT INFORMATION
  Report Type: 
  Country: None (occurrence: None)
  Receive Date: 20090916
  Receipt Date: 20090907
  Transmission Date: 20100115
  Serious: Yes (Hospitalization, Other)
  Sender: FDA-Public Use
  Company Number: PHHY2009GB29969

PATIENT
  Sex: Male

DRUGS (4)
  1. CLOZARIL [Suspect]
     Indication: SCHIZOPHRENIA
     Dosage: UNK
     Dates: start: 20070307
  2. CLOZARIL [Suspect]
     Dosage: UNK
  3. METFORMIN HCL [Concomitant]
  4. FENOFIBRATE [Concomitant]

REACTIONS (4)
  - DIABETES MELLITUS [None]
  - MENTAL DISORDER [None]
  - RASH [None]
  - TREATMENT NONCOMPLIANCE [None]
